FAERS Safety Report 5455360-X (Version None)
Quarter: 2007Q3

REPORT INFORMATION
  Report Type: 
  Country: None (occurrence: None)
  Receive Date: 20070918
  Receipt Date: 20070910
  Transmission Date: 20080115
  Serious: Yes (Death, Hospitalization)
  Sender: FDA-Public Use
  Company Number: FR-BRISTOL-MYERS SQUIBB COMPANY-13896592

PATIENT
  Age: 50 Year
  Sex: Female

DRUGS (3)
  1. CETUXIMAB [Suspect]
     Indication: SQUAMOUS CELL CARCINOMA OF THE CERVIX
     Dosage: I INFUSION ON 06JUL07; LAST INFUSION ON 13JUL07 - 250MG/M2 IV DAY 7
     Dates: start: 20070706
  2. CISPLATIN [Suspect]
     Indication: SQUAMOUS CELL CARCINOMA OF THE CERVIX
     Dates: start: 20070706
  3. TOPOTECAN [Suspect]
     Indication: SQUAMOUS CELL CARCINOMA OF THE CERVIX
     Dosage: I INFUSION ON 06JUL07; LAST INFUSION ON 08JUL07 0.75MG/M2 AT DAY 3
     Dates: start: 20070706

REACTIONS (5)
  - ANAEMIA [None]
  - ASTHENIA [None]
  - NEUTROPENIA [None]
  - SEPSIS [None]
  - THROMBOCYTOPENIA [None]
